FAERS Safety Report 13268647 (Version 2)
Quarter: 2017Q1

REPORT INFORMATION
  Report Type: Report from Study
  Country: None (occurrence: FI)
  Receive Date: 20170224
  Receipt Date: 20170322
  Transmission Date: 20170428
  Serious: Yes (Hospitalization)
  Sender: FDA-Public Use
  Company Number: FI-ABBVIE-17P-055-1886537-00

PATIENT
  Age: 69 Year
  Sex: Female

DRUGS (2)
  1. DUODOPA [Suspect]
     Active Substance: CARBIDOPA\LEVODOPA
     Indication: PARKINSON^S DISEASE
     Route: 050
     Dates: start: 20170207, end: 20170214
  2. DUODOPA [Suspect]
     Active Substance: CARBIDOPA\LEVODOPA
     Dosage: INTO THE SMALL INTESTINE ACCORDING TO SEPARATE INSTRUCTIONS; CD 3.5 ML
     Route: 050
     Dates: start: 20170214

REACTIONS (4)
  - Urinary tract infection [Recovering/Resolving]
  - C-reactive protein abnormal [Recovering/Resolving]
  - Pyrexia [Recovering/Resolving]
  - Pneumonia [Recovering/Resolving]

NARRATIVE: CASE EVENT DATE: 20170215
